FAERS Safety Report 4855110-1 (Version None)
Quarter: 2005Q4

REPORT INFORMATION
  Report Type: 
  Country: None (occurrence: None)
  Receive Date: 20051125
  Receipt Date: 20050128
  Transmission Date: 20060501
  Serious: Yes (Disabling)
  Sender: FDA-Public Use
  Company Number: US-JNJFOC-20041205307

PATIENT
  Age: 80 Year
  Sex: Female

DRUGS (11)
  1. LEVAQUIN [Suspect]
     Indication: UPPER RESPIRATORY TRACT INFECTION
     Dosage: 500 MG
  2. COUMADIN [Concomitant]
  3. FOLIC ACID [Concomitant]
  4. LASIX [Concomitant]
  5. LIPITOR [Concomitant]
  6. POTASSIUM [Concomitant]
  7. LOTENSIN [Concomitant]
  8. VITAMIN D [Concomitant]
  9. SLOW RELEASE IRON (IRON PREPARATIONS) [Concomitant]
  10. METROPROLOL (METOPROLOL) [Concomitant]
  11. FOSAMAX [Concomitant]

REACTIONS (1)
  - TENDON DISORDER [None]
